FAERS Safety Report 16993895 (Version 2)
Quarter: 2019Q4

REPORT INFORMATION
  Report Type: Spontaneous
  Country: BR (occurrence: BR)
  Receive Date: 20191105
  Receipt Date: 20191130
  Transmission Date: 20200122
  Serious: Yes (Other)
  Sender: FDA-Public Use
  Company Number: BR-AMGEN-BRASP2019182423

PATIENT
  Age: 66 Year
  Sex: Female

DRUGS (3)
  1. REUQUINOL [Concomitant]
     Active Substance: HYDROXYCHLOROQUINE SULFATE
     Dosage: UNK
  2. ENBREL [Suspect]
     Active Substance: ETANERCEPT
     Indication: PRODUCT USED FOR UNKNOWN INDICATION
     Dosage: UNK
     Route: 065
     Dates: start: 20170323, end: 201909
  3. ENBREL [Suspect]
     Active Substance: ETANERCEPT
     Dosage: UNK
     Route: 065

REACTIONS (11)
  - Foot deformity [Unknown]
  - Tooth malformation [Unknown]
  - Idiopathic pulmonary fibrosis [Unknown]
  - Mobility decreased [Unknown]
  - Spinal fracture [Unknown]
  - Hepatic cirrhosis [Unknown]
  - Gait disturbance [Unknown]
  - Lung disorder [Unknown]
  - Intervertebral disc protrusion [Unknown]
  - Joint swelling [Unknown]
  - Hand deformity [Unknown]
